FAERS Safety Report 20635562 (Version 11)
Quarter: 2022Q3

REPORT INFORMATION
  Report Type: Spontaneous
  Country: US (occurrence: US)
  Receive Date: 20220325
  Receipt Date: 20220823
  Transmission Date: 20221027
  Serious: No
  Sender: FDA-Public Use
  Company Number: US-PHARMING-PHAUS2022000182

PATIENT

DRUGS (10)
  1. RUCONEST [Suspect]
     Active Substance: HUMAN C1-ESTERASE INHIBITOR
     Indication: Hereditary angioedema
     Dosage: 2800 IU, TWICE WEEKLY
     Route: 042
     Dates: start: 20190821
  2. RUCONEST [Suspect]
     Active Substance: HUMAN C1-ESTERASE INHIBITOR
     Dosage: 2800 IU, TWICE WEEKLY
     Route: 042
     Dates: start: 20190821
  3. RUCONEST [Suspect]
     Active Substance: HUMAN C1-ESTERASE INHIBITOR
     Dosage: 2800 IU, TWICE WEEKLY
     Route: 042
     Dates: start: 20190821
  4. RUCONEST [Suspect]
     Active Substance: HUMAN C1-ESTERASE INHIBITOR
     Dosage: 2800 IU, TWICE WEEKLY
     Route: 042
     Dates: start: 20190821
  5. RUCONEST [Suspect]
     Active Substance: HUMAN C1-ESTERASE INHIBITOR
     Dosage: 2800 IU, TWICE WEEKLY
     Route: 042
     Dates: start: 20190821
  6. RUCONEST [Suspect]
     Active Substance: HUMAN C1-ESTERASE INHIBITOR
     Dosage: 2800 IU, TWICE WEEKLY
     Route: 042
     Dates: start: 20190821
  7. RUCONEST [Suspect]
     Active Substance: HUMAN C1-ESTERASE INHIBITOR
     Dosage: 2800 IU, TWICE WEEKLY
     Route: 042
     Dates: start: 20190510
  8. RUCONEST [Suspect]
     Active Substance: HUMAN C1-ESTERASE INHIBITOR
     Dosage: 2800 IU, TWICE WEEKLY
     Route: 042
     Dates: start: 20190822
  9. RUCONEST [Suspect]
     Active Substance: HUMAN C1-ESTERASE INHIBITOR
     Dosage: 2800 IU, TWICE WEEKLY
     Route: 042
     Dates: start: 20190821
  10. FIRAZYR [Concomitant]
     Active Substance: ICATIBANT ACETATE
     Indication: Product used for unknown indication
     Dosage: UNK, EVERY 4 HOURS PRN, MAX 3 TIMES WITHIN 24 HOURS

REACTIONS (2)
  - Condition aggravated [Unknown]
  - Intentional product use issue [Unknown]
